FAERS Safety Report 8952931 (Version 1)
Quarter: 2012Q4

REPORT INFORMATION
  Report Type: 
  Country: CA (occurrence: CA)
  Receive Date: 20121203
  Receipt Date: 20121203
  Transmission Date: 20130627
  Serious: Yes (Life-Threatening, Other)
  Sender: FDA-Public Use
  Company Number: CA-ELI_LILLY_AND_COMPANY-CA201211008779

PATIENT
  Age: 25 Year

DRUGS (1)
  1. EFFIENT [Suspect]

REACTIONS (2)
  - Endotracheal intubation [Unknown]
  - Haemorrhage [Unknown]
